FAERS Safety Report 9314749 (Version 2)
Quarter: 2013Q2

REPORT INFORMATION
  Report Type: Spontaneous
  Country: US (occurrence: US)
  Receive Date: 20130529
  Receipt Date: 20130604
  Transmission Date: 20140414
  Serious: Yes (Other)
  Sender: FDA-Public Use
  Company Number: US-PFIZER INC-2013159695

PATIENT
  Age: 71 Year
  Sex: Male
  Weight: 83.9 kg

DRUGS (6)
  1. LIPITOR [Suspect]
     Indication: CARDIAC DISORDER
     Dosage: 75 MG, 3X/DAY
     Dates: start: 2008
  2. LYRICA [Suspect]
     Indication: BACK DISORDER
     Dosage: 300 MG, DAILY
     Dates: start: 2013
  3. RAMIPRIL [Concomitant]
     Indication: CARDIAC DISORDER
     Dosage: UNK
  4. ASPIRIN [Concomitant]
     Indication: CARDIAC DISORDER
     Dosage: 81 MG, UNK
  5. COENZYME Q10 [Concomitant]
     Dosage: UNK
  6. PLAVIX [Concomitant]
     Dosage: 75 MG, DAILY

REACTIONS (5)
  - Muscle injury [Not Recovered/Not Resolved]
  - Back disorder [Not Recovered/Not Resolved]
  - Pain [Unknown]
  - Insomnia [Unknown]
  - Drug ineffective [Unknown]
